FAERS Safety Report 8258345-3 (Version None)
Quarter: 2012Q1

REPORT INFORMATION
  Report Type: 
  Country: None (occurrence: None)
  Receive Date: 20120322
  Receipt Date: 20120124
  Transmission Date: 20120608
  Serious: Yes (Hospitalization)
  Sender: FDA-Public Use
  Company Number: UTC-014943

PATIENT
  Age: 64 Year
  Sex: Female

DRUGS (4)
  1. SINGULAIR [Concomitant]
  2. SPIRIVA [Concomitant]
  3. TYVASO [Suspect]
     Indication: PULMONARY ARTERIAL HYPERTENSION
     Dosage: 288 MCG (72 MCG,4 IN 1 D),INHALATION
     Route: 055
     Dates: start: 20101109
  4. ASMANEX TWISTHALER [Concomitant]

REACTIONS (2)
  - BRONCHITIS [None]
  - DYSPHONIA [None]
